FAERS Safety Report 5625384-8 (Version None)
Quarter: 2008Q1

REPORT INFORMATION
  Report Type: 
  Country: None (occurrence: None)
  Receive Date: 20080211
  Receipt Date: 20080204
  Transmission Date: 20080703
  Serious: Yes (Death)
  Sender: FDA-Public Use
  Company Number: 2008-00782

PATIENT
  Age: 56 Year
  Sex: Male

DRUGS (6)
  1. DIAZEPAM [Suspect]
  2. TEMAZEPAM [Suspect]
  3. HYDROCODONE BITARTRATE + ACETAMINOPHEN [Suspect]
  4. FLUOXETINE [Suspect]
  5. BARBENYL() [Suspect]
  6. BENZODIAZEPINE DERIVATIVES() [Suspect]

REACTIONS (1)
  - DEATH [None]
